FAERS Safety Report 5562952-6 (Version None)
Quarter: 2007Q4

REPORT INFORMATION
  Report Type: 
  Country: None (occurrence: None)
  Receive Date: 20071217
  Receipt Date: 20071211
  Transmission Date: 20080405
  Serious: Yes (Death, Hospitalization)
  Sender: FDA-Public Use
  Company Number: JP-BAYER-200711022BYL

PATIENT
  Age: 78 Year
  Sex: Male

DRUGS (3)
  1. ASPIRIN [Suspect]
     Indication: CEREBRAL INFARCTION
     Dosage: TOTAL DAILY DOSE: 100 MG  UNIT DOSE: 100 MG
     Route: 048
  2. SELBEX [Suspect]
     Route: 048
  3. ESTRACYT [Suspect]
     Indication: PROSTATE CANCER
     Route: 048

REACTIONS (1)
  - INTRA-ABDOMINAL HAEMORRHAGE [None]
